FAERS Safety Report 5169073-5 (Version None)
Quarter: 2006Q4

REPORT INFORMATION
  Report Type: 
  Country: None (occurrence: None)
  Receive Date: 20061211
  Receipt Date: 20061201
  Transmission Date: 20070319
  Serious: Yes (Hospitalization)
  Sender: FDA-Public Use
  Company Number: US-JNJFOC-20061201180

PATIENT
  Sex: Female

DRUGS (11)
  1. INFLIXIMAB [Suspect]
     Indication: RHEUMATOID ARTHRITIS
     Route: 042
  2. COUMADIN [Concomitant]
  3. METHOTREXATE [Concomitant]
  4. FOLIC ACID [Concomitant]
  5. TRAMADOL HCL [Concomitant]
  6. FERROUS SULFATE TAB [Concomitant]
  7. DIOVAN [Concomitant]
  8. TOPROL-XL [Concomitant]
  9. LOTREL [Concomitant]
  10. BUPROPION HCL [Concomitant]
  11. B-12 [Concomitant]

REACTIONS (2)
  - HAEMATOMA [None]
  - PNEUMONIA [None]
